FAERS Safety Report 5202946-3 (Version None)
Quarter: 2006Q4

REPORT INFORMATION
  Report Type: 
  Country: None (occurrence: None)
  Receive Date: 20061018
  Receipt Date: 20060425
  Transmission Date: 20070319
  Serious: Yes (Other)
  Sender: FDA-Public Use
  Company Number: PHEH2006US05419

PATIENT
  Age: 64 Year
  Sex: Female

DRUGS (5)
  1. ZOMETA [Suspect]
     Indication: NEOPLASM MALIGNANT
     Dosage: UNK, UNK, UNK
     Dates: start: 20050901, end: 20060301
  2. ZOMETA [Suspect]
     Indication: NEOPLASM MALIGNANT
     Dosage: UNK, UNK, UNK
     Dates: start: 20020101
  3. XELODA [Concomitant]
  4. TYLENOL [Concomitant]
  5. MULTI-VITAMINS [Concomitant]

REACTIONS (6)
  - BONE DISORDER [None]
  - EATING DISORDER [None]
  - GINGIVAL BLEEDING [None]
  - IMPAIRED HEALING [None]
  - TOOTH EXTRACTION [None]
  - TOOTH INFECTION [None]
